FAERS Safety Report 22609876 (Version 1)
Quarter: 2023Q2

REPORT INFORMATION
  Report Type: Spontaneous
  Country: US (occurrence: US)
  Receive Date: 20230616
  Receipt Date: 20230616
  Transmission Date: 20230722
  Serious: Yes (Hospitalization, Other)
  Sender: FDA-Public Use
  Company Number: US-SA-SAC20230612001443

PATIENT
  Age: 29 Year
  Sex: Female

DRUGS (4)
  1. CABLIVI [Suspect]
     Active Substance: CAPLACIZUMAB-YHDP
     Route: 058
     Dates: start: 20230401
  2. CABLIVI [Suspect]
     Active Substance: CAPLACIZUMAB-YHDP
     Route: 058
     Dates: start: 20230401
  3. CABLIVI [Suspect]
     Active Substance: CAPLACIZUMAB-YHDP
     Route: 058
     Dates: start: 20230401
  4. CABLIVI [Suspect]
     Active Substance: CAPLACIZUMAB-YHDP
     Route: 058
     Dates: start: 20230401

REACTIONS (6)
  - Systemic lupus erythematosus [Recovered/Resolved]
  - Rash [Recovered/Resolved]
  - Mouth ulceration [Recovered/Resolved]
  - Arthralgia [Recovered/Resolved]
  - Myalgia [Recovered/Resolved]
  - Full blood count decreased [Recovered/Resolved]

NARRATIVE: CASE EVENT DATE: 20230101
